FAERS Safety Report 8610262-2 (Version None)
Quarter: 2012Q3

REPORT INFORMATION
  Report Type: 
  Country: None (occurrence: None)
  Receive Date: 20120810
  Receipt Date: 20120810
  Transmission Date: 20120928
  Serious: Yes (Hospitalization)
  Sender: FDA-Public Use
  Company Number: None

PATIENT
  Age: 63 Year
  Weight: 110.6777 kg

DRUGS (3)
  1. TELEPREVIR 375 MG VERTEX [Suspect]
     Indication: HEPATITIS C
     Dosage: 2 TAB TIED PO
     Route: 048
     Dates: start: 20120213, end: 20120415
  2. RIBAVIRIN [Suspect]
     Indication: HEPATITIS C
     Dosage: 1200MG PO DAILY OTHER
     Route: 050
     Dates: start: 20120213, end: 20120415
  3. PEGASYS [Suspect]
     Indication: HEPATITIS C
     Dosage: 180 MCG SQ WEEKLY
     Route: 050
     Dates: start: 20120213, end: 20120415

REACTIONS (14)
  - LOSS OF CONSCIOUSNESS [None]
  - ACUTE RESPIRATORY DISTRESS SYNDROME [None]
  - THROMBOCYTOPENIA [None]
  - ACUTE PRERENAL FAILURE [None]
  - SEPTIC SHOCK [None]
  - HYPOALBUMINAEMIA [None]
  - PNEUMONIA [None]
  - PYREXIA [None]
  - LIVER DISORDER [None]
  - URINARY TRACT INFECTION [None]
  - RHABDOMYOLYSIS [None]
  - ISCHAEMIC HEPATITIS [None]
  - GENERALISED OEDEMA [None]
  - RESPIRATORY FAILURE [None]
